FAERS Safety Report 19921892 (Version 5)
Quarter: 2022Q2

REPORT INFORMATION
  Report Type: Report from Study
  Country: GB (occurrence: GB)
  Receive Date: 20211005
  Receipt Date: 20220512
  Transmission Date: 20220721
  Serious: Yes (Death, Hospitalization, Other)
  Sender: FDA-Public Use
  Company Number: GB-ROCHE-2660214

PATIENT
  Age: 75 Year
  Sex: Female
  Weight: 56.9 kg

DRUGS (35)
  1. BEVACIZUMAB [Suspect]
     Active Substance: BEVACIZUMAB
     Indication: Small cell lung cancer extensive stage
     Dosage: UNK
     Route: 065
  2. PACLITAXEL [Suspect]
     Active Substance: PACLITAXEL
     Indication: Small cell lung cancer extensive stage
     Dosage: UNK
     Route: 065
  3. ETOPOSIDE [Suspect]
     Active Substance: ETOPOSIDE
     Indication: Small cell lung cancer extensive stage
     Dosage: 164 MILLIGRAM (PREVIOUSLY MENTIONED 100 MG/M2 ONCE  )
     Route: 065
     Dates: start: 20200615, end: 20200617
  4. ETOPOSIDE [Suspect]
     Active Substance: ETOPOSIDE
     Indication: Non-small cell lung cancer
     Dosage: 100 MILLIGRAM/SQ. METER
     Route: 065
     Dates: start: 20200615, end: 20200617
  5. ETOPOSIDE [Suspect]
     Active Substance: ETOPOSIDE
     Dosage: 100 MILLIGRAM/SQ. METER
     Route: 065
     Dates: start: 20200728, end: 20200729
  6. ETOPOSIDE [Suspect]
     Active Substance: ETOPOSIDE
     Dosage: 100 MILLIGRAM/SQ. METER, BID
     Route: 042
     Dates: start: 20200818
  7. ETOPOSIDE [Suspect]
     Active Substance: ETOPOSIDE
     Dosage: 600 MILLIGRAM
     Route: 048
     Dates: start: 20200707
  8. ATEZOLIZUMAB [Suspect]
     Active Substance: ATEZOLIZUMAB
     Indication: Small cell lung cancer extensive stage
     Dosage: 1200 MILLIGRAM, Q3W (ON 17/AUG/2020 SHE RECEIVED MOST RECENT DOSES OF ATEZOLIZUMAB)
     Route: 041
     Dates: start: 20200615
  9. ATEZOLIZUMAB [Suspect]
     Active Substance: ATEZOLIZUMAB
     Indication: Non-small cell lung cancer
     Dosage: 1200 MILLIGRAM, Q3W (ON 17/AUG/2020 SHE RECEIVED MOST RECENT DOSES OF ATEZOLIZUMAB)
     Route: 042
     Dates: start: 20200706
  10. ATEZOLIZUMAB [Suspect]
     Active Substance: ATEZOLIZUMAB
     Indication: Transitional cell carcinoma
     Dosage: 1200 MILLIGRAM, Q3W (ON 17/AUG/2020 SHE RECEIVED MOST RECENT DOSES OF ATEZOLIZUMAB)
     Route: 042
     Dates: start: 20200727
  11. ATEZOLIZUMAB [Suspect]
     Active Substance: ATEZOLIZUMAB
     Dosage: 1200 MILLIGRAM, Q3W (ON 17/AUG/2020 SHE RECEIVED MOST RECENT DOSES OF ATEZOLIZUMAB)
     Route: 042
     Dates: start: 20200817
  12. CARBOPLATIN [Suspect]
     Active Substance: CARBOPLATIN
     Indication: Small cell lung cancer extensive stage
     Dosage: 400 MILLIGRAM
     Route: 065
     Dates: start: 20200615
  13. CARBOPLATIN [Suspect]
     Active Substance: CARBOPLATIN
     Indication: Non-small cell lung cancer
     Dosage: UNK
     Route: 065
  14. BECLOMETHASONE\FORMOTEROL [Concomitant]
     Active Substance: BECLOMETHASONE\FORMOTEROL
     Indication: Chronic obstructive pulmonary disease
     Dosage: UNK UNK, BID (START DATE: 02-SEP-2020)
  15. LANSOPRAZOLE [Concomitant]
     Active Substance: LANSOPRAZOLE
     Indication: Gastrooesophageal reflux disease
     Dosage: UNK
  16. SENNA [Concomitant]
     Active Substance: SENNA LEAF\SENNOSIDES\SENNOSIDES A AND B
     Dosage: UNK, START DATE: 02-SEP-2020
  17. GABAPENTIN [Concomitant]
     Active Substance: GABAPENTIN
     Dosage: UNK
     Dates: start: 20200401
  18. APIXABAN [Concomitant]
     Active Substance: APIXABAN
     Indication: Deep vein thrombosis
     Dosage: UNK UNK, BID
     Dates: start: 20200814, end: 20200820
  19. APIXABAN [Concomitant]
     Active Substance: APIXABAN
     Dosage: UNK UNK, BID
     Dates: start: 20200820
  20. FUROSEMIDE [Concomitant]
     Active Substance: FUROSEMIDE
     Dosage: UNK UNK, QD
  21. FUROSEMIDE [Concomitant]
     Active Substance: FUROSEMIDE
     Dosage: UNK UNK, QD, START DATE: 02-SEP-2020
  22. BUPRENORPHINE [Concomitant]
     Active Substance: BUPRENORPHINE
     Dosage: UNK UNK, QW
     Dates: start: 20200401
  23. POLYETHYLENE GLYCOL 3350\POTASSIUM CHLORIDE\SODIUM BICARBONATE\SODIUM [Concomitant]
     Active Substance: POLYETHYLENE GLYCOL 3350\POTASSIUM CHLORIDE\SODIUM BICARBONATE\SODIUM CHLORIDE
     Dosage: UNK, START DATE: 02-SEP-2020
     Dates: start: 20200902
  24. DICLOFENAC [Concomitant]
     Active Substance: DICLOFENAC
     Dosage: UNK
     Dates: start: 20200401
  25. ALBUTEROL [Concomitant]
     Active Substance: ALBUTEROL
     Indication: Chronic obstructive pulmonary disease
     Dosage: UNK
  26. DOCUSATE SODIUM [Concomitant]
     Active Substance: DOCUSATE SODIUM
     Dosage: UNK UNK, QD
     Route: 065
  27. CO-AMILOFRUSE [Concomitant]
     Active Substance: AMILORIDE\FUROSEMIDE
     Dosage: UNK, START DATE: 02-SEP-2020
  28. ZOLEDRONIC ACID [Concomitant]
     Active Substance: ZOLEDRONIC ACID
     Indication: Prophylaxis
     Dosage: UNK UNK, QW
     Dates: start: 20170101
  29. CALCIUM CARBONATE\CHOLECALCIFEROL [Concomitant]
     Active Substance: CALCIUM CARBONATE\CHOLECALCIFEROL
     Indication: Product used for unknown indication
     Dosage: UNK UNK, BID, START DATE: 02-SEP-2020
     Dates: start: 20200902
  30. TIOTROPIUM [Concomitant]
     Active Substance: TIOTROPIUM
     Dosage: UNK UNK, QD ( START DATE: 02-SEP-2020)
  31. SPIRIVA [Concomitant]
     Active Substance: TIOTROPIUM BROMIDE MONOHYDRATE
     Indication: Chronic obstructive pulmonary disease
     Dosage: UNK, MONTHLY
     Dates: start: 20200301
  32. HERBALS\TURMERIC [Concomitant]
     Active Substance: HERBALS\TURMERIC
     Dosage: UNK UNK, BID (START DATE:27-JUL-2020)
     Dates: end: 20200727
  33. MORPHINE SULFATE [Concomitant]
     Active Substance: MORPHINE SULFATE
     Dosage: UNK (START DATE:01-MAY-2020 00:00)
  34. MIRABEGRON [Concomitant]
     Active Substance: MIRABEGRON
     Indication: Urinary retention
     Dosage: UNK UNK, QD
     Dates: start: 20130101
  35. CISPLATIN [Concomitant]
     Active Substance: CISPLATIN
     Dosage: UNK

REACTIONS (8)
  - Death [Fatal]
  - Pneumonia [Recovered/Resolved]
  - Lower respiratory tract infection [Recovered/Resolved]
  - Deep vein thrombosis [Not Recovered/Not Resolved]
  - Fall [Unknown]
  - Back pain [Not Recovered/Not Resolved]
  - Alopecia [Not Recovered/Not Resolved]
  - Anaemia [Recovered/Resolved]

NARRATIVE: CASE EVENT DATE: 20200703
